FAERS Safety Report 5404695-5 (Version None)
Quarter: 2007Q3

REPORT INFORMATION
  Report Type: 
  Country: None (occurrence: None)
  Receive Date: 20070731
  Receipt Date: 20070717
  Transmission Date: 20080115
  Serious: Yes (Death)
  Sender: FDA-Public Use
  Company Number: 17053

PATIENT
  Age: 78 Year
  Sex: Male

DRUGS (2)
  1. CYTARABINE [Suspect]
     Indication: ACUTE MYELOID LEUKAEMIA
     Dosage: 20 MG BID SC
     Route: 058
     Dates: start: 20070516, end: 20070607
  2. ZARNESTRA [Suspect]
     Indication: ACUTE MYELOID LEUKAEMIA
     Dosage: 300 MG PO
     Route: 048
     Dates: start: 20070516, end: 20070607

REACTIONS (3)
  - ACUTE MYELOID LEUKAEMIA [None]
  - DRUG INEFFECTIVE [None]
  - SEPSIS [None]
